FAERS Safety Report 20809509 (Version 1)
Quarter: 2022Q2

REPORT INFORMATION
  Report Type: Report from Study
  Country: US (occurrence: US)
  Receive Date: 20220510
  Receipt Date: 20220510
  Transmission Date: 20220721
  Serious: Yes (Other)
  Sender: FDA-Public Use
  Company Number: US-UCBSA-2022025426

PATIENT
  Age: 0 Year
  Sex: Female
  Weight: 3.35 kg

DRUGS (11)
  1. CERTOLIZUMAB PEGOL [Suspect]
     Active Substance: CERTOLIZUMAB PEGOL
     Indication: Crohn^s disease
     Dosage: 400 MILLIGRAM, MONTHLY (QM)
     Route: 064
     Dates: start: 20190716, end: 20200408
  2. AMOXICILLIN [Concomitant]
     Active Substance: AMOXICILLIN
     Indication: Sinusitis
     Dosage: 1 DOSAGE FORM, EV 3 DAYS
     Route: 064
     Dates: start: 20200124, end: 20200130
  3. INFLUENZA VIRUS VACCINE [Concomitant]
     Active Substance: INFLUENZA VIRUS VACCINE
     Indication: Product used for unknown indication
     Dosage: 1 DOSAGE FORM, ONE TIME DOSE
     Route: 064
     Dates: start: 20200122, end: 20200122
  4. MINERALS\VITAMINS [Concomitant]
     Active Substance: MINERALS\VITAMINS
     Indication: Product used for unknown indication
     Dosage: 2 DOSAGE FORM
     Route: 064
     Dates: start: 20190806, end: 20190916
  5. MINERALS\VITAMINS [Concomitant]
     Active Substance: MINERALS\VITAMINS
     Dosage: 2 DOSAGE FORM, ONCE DAILY (QD)
     Route: 064
     Dates: start: 20190917, end: 20200408
  6. PROBIOTICS NOS [Concomitant]
     Active Substance: PROBIOTICS NOS
     Indication: Product used for unknown indication
     Dosage: 1 DOSAGE FORM, ONCE DAILY (QD)
     Route: 064
     Dates: start: 20190806, end: 20190827
  7. SUDAFED [Concomitant]
     Active Substance: PSEUDOEPHEDRINE HYDROCHLORIDE
     Indication: Sinusitis
     Dosage: 1 DOSAGE FORM, ONCE DAILY (QD)
     Route: 064
     Dates: start: 20190903, end: 20190904
  8. SUDAFED [Concomitant]
     Active Substance: PSEUDOEPHEDRINE HYDROCHLORIDE
     Indication: Nasopharyngitis
     Dosage: 10 MILLIGRAM, EV 4 DAYS
     Route: 064
     Dates: start: 20200113, end: 20200203
  9. TETANUS TOXOID, REDUCED DIPHTHERIA TOXOID AND ACELLULAR PERTUSSIS VACC [Concomitant]
     Active Substance: TETANUS TOXOID, REDUCED DIPHTHERIA TOXOID AND ACELLULAR PERTUSSIS VACCINE ADSORBED, TDAP
     Indication: Product used for unknown indication
     Dosage: 1 DOSAGE FORM, ONE TIME DOSE
     Route: 064
     Dates: start: 20200122, end: 20200122
  10. TYLENOL [Concomitant]
     Active Substance: ACETAMINOPHEN
     Indication: Sinusitis
     Dosage: 2 DOSAGE FORM, EVERY 3.5 DAYS
     Route: 064
     Dates: start: 20200113, end: 20200203
  11. TYLENOL [Concomitant]
     Active Substance: ACETAMINOPHEN
     Indication: Nasopharyngitis
     Dosage: 1 DOSAGE FORM, TOTAL 6 PILLS
     Route: 064
     Dates: start: 20190905, end: 20190908

REACTIONS (5)
  - Deafness [Unknown]
  - Otitis media [Unknown]
  - Deafness bilateral [Unknown]
  - Maternal exposure before pregnancy [Unknown]
  - Maternal exposure during pregnancy [Unknown]

NARRATIVE: CASE EVENT DATE: 20190716
